FAERS Safety Report 7306144-9 (Version None)
Quarter: 2011Q1

REPORT INFORMATION
  Report Type: 
  Country: None (occurrence: None)
  Receive Date: 20110209
  Receipt Date: 20110126
  Transmission Date: 20110831
  Serious: Yes (Life-Threatening)
  Sender: FDA-Public Use
  Company Number: US-1184806

PATIENT
  Age: 90 Year
  Sex: Female

DRUGS (1)
  1. BETOPTIC S [Suspect]
     Dosage: (1 GTT QD OU OPHTHALMIC)
     Route: 047

REACTIONS (2)
  - INTESTINAL OBSTRUCTION [None]
  - CARDIAC ARREST [None]
